FAERS Safety Report 16451204 (Version 1)
Quarter: 2019Q2

REPORT INFORMATION
  Report Type: Report from Study
  Country: IT (occurrence: IT)
  Receive Date: 20190619
  Receipt Date: 20190619
  Transmission Date: 20190711
  Serious: Yes (Life-Threatening)
  Sender: FDA-Public Use
  Company Number: IT-PFIZER INC-2019259482

PATIENT
  Sex: Female
  Weight: 71 kg

DRUGS (102)
  1. DOXORUBICIN HCL [Suspect]
     Active Substance: DOXORUBICIN HYDROCHLORIDE
     Dosage: 89 MG, UNK
     Route: 040
     Dates: start: 20180419
  2. METHYLPREDNISOLONE. [Suspect]
     Active Substance: METHYLPREDNISOLONE
     Dosage: 125 MG, UNK
     Route: 040
     Dates: start: 20180329
  3. VINCRISTINE SULFATE. [Suspect]
     Active Substance: VINCRISTINE SULFATE
     Dosage: 2 MG, UNK
     Route: 040
     Dates: start: 20180713
  4. VINCRISTINE SULFATE. [Suspect]
     Active Substance: VINCRISTINE SULFATE
     Dosage: 2 MG, UNK
     Route: 040
     Dates: start: 20180622
  5. TRUXIMA [Suspect]
     Active Substance: RITUXIMAB-ABBS
     Dosage: 667.5 MG, UNK (667.5 MG + CHOP)
     Route: 042
     Dates: start: 20180418
  6. CHLORPHENAMINE [Suspect]
     Active Substance: CHLORPHENIRAMINE MALEATE
     Dosage: 10 MG, UNK (10 MG, INFUSION)
     Dates: start: 20180713
  7. ONDANSETRON [Suspect]
     Active Substance: ONDANSETRON
     Dosage: 8 MG, WITH ETOPOSIDE AND IFOSFAMIDE
     Dates: start: 20180927
  8. IFOSFAMIDE. [Suspect]
     Active Substance: IFOSFAMIDE
     Dosage: 4.4 MG, UNK (4.400 MG, INFUSION)
     Dates: start: 20181026
  9. SODIUM CHLORIDE. [Concomitant]
     Active Substance: SODIUM CHLORIDE
     Dosage: INFUSION
     Dates: start: 20181025
  10. MESNA. [Concomitant]
     Active Substance: MESNA
     Dosage: 4.45 MG, UNK (4.450 MG, INFUSION)
     Dates: start: 20180927
  11. MESNA. [Concomitant]
     Active Substance: MESNA
     Dosage: 4.45 MG, UNK (4.450 MG, INFUSION)
     Dates: start: 20180928
  12. DESAMETASONE [Concomitant]
     Active Substance: DEXAMETHASONE
     Dosage: 14.24 MG, INFUSION
     Dates: start: 20181024
  13. RINGER^S SOLUTION [CALCIUM CHLORIDE;POTASSIUM CHLORIDE;SODIUM CHLORIDE [Concomitant]
     Dosage: INFUSION
     Dates: start: 20180927
  14. RINGER^S SOLUTION [CALCIUM CHLORIDE;POTASSIUM CHLORIDE;SODIUM CHLORIDE [Concomitant]
     Dosage: INFUSION
     Dates: start: 20181024
  15. POTASSIUM CHLORIDE. [Concomitant]
     Active Substance: POTASSIUM CHLORIDE
     Dosage: 40 MEQ, INFUSION
     Dates: start: 20181025
  16. POTASSIUM CHLORIDE. [Concomitant]
     Active Substance: POTASSIUM CHLORIDE
     Dosage: 40 MEQ, INFUSION
     Dates: start: 20181024
  17. GLUCOSE [Concomitant]
     Active Substance: DEXTROSE
     Dosage: 500 ML, INFUSION
     Dates: start: 20180927
  18. GLUCOSE [Concomitant]
     Active Substance: DEXTROSE
     Dosage: 500 ML, INFUSION
     Dates: start: 20181024
  19. VINCRISTINE SULFATE. [Suspect]
     Active Substance: VINCRISTINE SULFATE
     Dosage: 2 MG, UNK
     Route: 040
     Dates: start: 20180329
  20. CHLORPHENAMINE [Suspect]
     Active Substance: CHLORPHENIRAMINE MALEATE
     Indication: DIFFUSE LARGE B-CELL LYMPHOMA
     Dosage: 10 MG, UNK (10 MG, INFUSION)
     Dates: start: 20180601
  21. CHLORPHENAMINE [Suspect]
     Active Substance: CHLORPHENIRAMINE MALEATE
     Dosage: 10 MG, UNK (10 MG, INFUSION)
     Dates: start: 20180419
  22. ONDANSETRON [Suspect]
     Active Substance: ONDANSETRON
     Dosage: 8 MG, UNK (8 MG, INFUSION)
     Dates: start: 20180329
  23. CYCLOPHOSPHAMIDE. [Suspect]
     Active Substance: CYCLOPHOSPHAMIDE
     Indication: DIFFUSE LARGE B-CELL LYMPHOMA
     Dosage: 1.33 MG, UNK (1.335 MG, INFUSION)
     Dates: start: 20180329
  24. CYCLOPHOSPHAMIDE. [Suspect]
     Active Substance: CYCLOPHOSPHAMIDE
     Dosage: 1.33 MG, UNK (1.335 MG, INFUSION)
     Dates: start: 20180622
  25. ETOPOSIDE. [Suspect]
     Active Substance: ETOPOSIDE
     Dosage: 267 MG, UNK (267 MG, INFUSION)
     Dates: start: 20181026
  26. SODIUM CHLORIDE. [Concomitant]
     Active Substance: SODIUM CHLORIDE
     Dosage: INFUSION
     Dates: start: 20180927
  27. POTASSIUM CHLORIDE. [Concomitant]
     Active Substance: POTASSIUM CHLORIDE
     Dosage: 40 MEQ, INFUSION
     Dates: start: 20181026
  28. GLUCOSE [Concomitant]
     Active Substance: DEXTROSE
     Dosage: 500 ML, INFUSION
     Dates: start: 20181025
  29. DOXORUBICIN HCL [Suspect]
     Active Substance: DOXORUBICIN HYDROCHLORIDE
     Dosage: 89 MG, UNK
     Route: 040
     Dates: start: 20180512
  30. METHYLPREDNISOLONE. [Suspect]
     Active Substance: METHYLPREDNISOLONE
     Dosage: 125 MG, UNK
     Route: 040
     Dates: start: 20180713
  31. METHYLPREDNISOLONE. [Suspect]
     Active Substance: METHYLPREDNISOLONE
     Dosage: 125 MG, UNK
     Route: 040
     Dates: start: 20180419
  32. TRUXIMA [Suspect]
     Active Substance: RITUXIMAB-ABBS
     Dosage: 667.5 MG, UNK (667.5 MG + CHOP)
     Route: 042
     Dates: start: 20180712
  33. ONDANSETRON [Suspect]
     Active Substance: ONDANSETRON
     Dosage: 8 MG, UNK (8 MG, WITH IEV THERAPY)
     Dates: start: 20181025
  34. ONDANSETRON [Suspect]
     Active Substance: ONDANSETRON
     Dosage: 8 MG, UNK (8 MG, INFUSION)
     Dates: start: 20180622
  35. ONDANSETRON [Suspect]
     Active Substance: ONDANSETRON
     Dosage: 8 MG, UNK (8 MG, WITH ETOPOSIDE AND IFOSFAMIDE)
     Dates: start: 20180928
  36. ETOPOSIDE. [Suspect]
     Active Substance: ETOPOSIDE
     Indication: DIFFUSE LARGE B-CELL LYMPHOMA
     Dosage: 267 MG, UNK (267 MG, INFUSION)
     Dates: start: 20180928
  37. ETOPOSIDE. [Suspect]
     Active Substance: ETOPOSIDE
     Dosage: 267 MG, UNK (267 MG, INFUSION)
     Dates: start: 20181024
  38. ETOPOSIDE. [Suspect]
     Active Substance: ETOPOSIDE
     Dosage: 267 MG, UNK (267 MG, INFUSION)
     Dates: start: 20180927
  39. SODIUM CHLORIDE. [Concomitant]
     Active Substance: SODIUM CHLORIDE
     Dosage: INFUSION
     Dates: start: 20181024
  40. RINGER^S SOLUTION [CALCIUM CHLORIDE;POTASSIUM CHLORIDE;SODIUM CHLORIDE [Concomitant]
     Dosage: INFUSION
     Dates: start: 20181026
  41. DOXORUBICIN HCL [Suspect]
     Active Substance: DOXORUBICIN HYDROCHLORIDE
     Dosage: 89 MG, UNK
     Route: 040
     Dates: start: 20180622
  42. METHYLPREDNISOLONE. [Suspect]
     Active Substance: METHYLPREDNISOLONE
     Dosage: 125 MG, UNK
     Route: 040
     Dates: start: 20180512
  43. TRUXIMA [Suspect]
     Active Substance: RITUXIMAB-ABBS
     Dosage: 665 MG, UNK (665 MG + IEV)
     Route: 042
     Dates: start: 20181023
  44. TRUXIMA [Suspect]
     Active Substance: RITUXIMAB-ABBS
     Dosage: 667.5 MG, UNK (667.5 MG (AS MAINTENANCE))
     Route: 042
     Dates: start: 20180823
  45. CHLORPHENAMINE [Suspect]
     Active Substance: CHLORPHENIRAMINE MALEATE
     Dosage: 10 MG, UNK (10 MG, INFUSION)
     Dates: start: 20180329
  46. CHLORPHENAMINE [Suspect]
     Active Substance: CHLORPHENIRAMINE MALEATE
     Dosage: 10 MG, UNK (10 MG, INFUSION)
     Dates: start: 20180512
  47. ONDANSETRON [Suspect]
     Active Substance: ONDANSETRON
     Dosage: 8 MG, UNK (8 MG, INFUSION)
     Dates: start: 20180512
  48. ETOPOSIDE. [Suspect]
     Active Substance: ETOPOSIDE
     Dosage: 267 MG, UNK (267 MG, INFUSION)
     Dates: start: 20180926
  49. GLUCOSE [Concomitant]
     Active Substance: DEXTROSE
     Dosage: 500 ML, INFUSION
     Dates: start: 20180926
  50. METHYLPREDNISOLONE. [Suspect]
     Active Substance: METHYLPREDNISOLONE
     Dosage: 125 MG, UNK
     Route: 040
     Dates: start: 20180622
  51. TRUXIMA [Suspect]
     Active Substance: RITUXIMAB-ABBS
     Dosage: 667.5 MG, UNK (667.5 MG + CHOP)
     Route: 042
     Dates: start: 20180621
  52. ONDANSETRON [Suspect]
     Active Substance: ONDANSETRON
     Dosage: 8 MG, UNK (8 MG, INFUSION)
     Dates: start: 20180419
  53. MESNA. [Concomitant]
     Active Substance: MESNA
     Dosage: 4.45 MG, UNK (4.450 MG, INFUSION)
     Dates: start: 20181024
  54. DESAMETASONE [Concomitant]
     Active Substance: DEXAMETHASONE
     Dosage: 14.24 MG, INFUSION
     Dates: start: 20180928
  55. RINGER^S SOLUTION [CALCIUM CHLORIDE;POTASSIUM CHLORIDE;SODIUM CHLORIDE [Concomitant]
     Dosage: INFUSION
     Dates: start: 20180926
  56. RINGER^S SOLUTION [CALCIUM CHLORIDE;POTASSIUM CHLORIDE;SODIUM CHLORIDE [Concomitant]
     Dosage: INFUSION
     Dates: start: 20181025
  57. POTASSIUM CHLORIDE. [Concomitant]
     Active Substance: POTASSIUM CHLORIDE
     Dosage: 40 MEQ, INFUSION
     Dates: start: 20180928
  58. PALONOSETRON. [Concomitant]
     Active Substance: PALONOSETRON HYDROCHLORIDE
     Dosage: 250 UG, UNK
     Route: 030
     Dates: start: 20181024
  59. DOXORUBICIN HCL [Suspect]
     Active Substance: DOXORUBICIN HYDROCHLORIDE
     Indication: DIFFUSE LARGE B-CELL LYMPHOMA
     Dosage: 89 MG, UNK
     Route: 040
     Dates: start: 20180601
  60. EPIRUBICIN HCL [Suspect]
     Active Substance: EPIRUBICIN HYDROCHLORIDE
     Dosage: 178 MG, UNK
     Route: 030
     Dates: start: 20180926
  61. TRUXIMA [Suspect]
     Active Substance: RITUXIMAB-ABBS
     Indication: DIFFUSE LARGE B-CELL LYMPHOMA
     Dosage: 667.5 MG, UNK (667.5 MG + CHOP)
     Route: 042
     Dates: start: 20180531
  62. TRUXIMA [Suspect]
     Active Substance: RITUXIMAB-ABBS
     Dosage: 667.5 MG, UNK (667.5 MG + CHOP)
     Route: 042
     Dates: start: 20180511
  63. CHLORPHENAMINE [Suspect]
     Active Substance: CHLORPHENIRAMINE MALEATE
     Dosage: 10 MG, UNK (10 MG, INFUSION)
     Dates: start: 20180622
  64. CYCLOPHOSPHAMIDE. [Suspect]
     Active Substance: CYCLOPHOSPHAMIDE
     Dosage: 1.33 MG, UNK (1.335 MG, INFUSION)
     Dates: start: 20180512
  65. IFOSFAMIDE. [Suspect]
     Active Substance: IFOSFAMIDE
     Indication: DIFFUSE LARGE B-CELL LYMPHOMA
     Dosage: 4.4 MG, UNK (4.400 MG, INFUSION)
     Dates: start: 20180928
  66. ETOPOSIDE. [Suspect]
     Active Substance: ETOPOSIDE
     Dosage: 267 MG, UNK (267 MG, INFUSION)
     Dates: start: 20181025
  67. MESNA. [Concomitant]
     Active Substance: MESNA
     Dosage: 4.45 MG, UNK (4.450 MG, INFUSION)
     Dates: start: 20181026
  68. PALONOSETRON. [Concomitant]
     Active Substance: PALONOSETRON HYDROCHLORIDE
     Dosage: 250 UG, UNK
     Route: 030
     Dates: start: 20180926
  69. DOXORUBICIN HCL [Suspect]
     Active Substance: DOXORUBICIN HYDROCHLORIDE
     Dosage: 89 MG, UNK
     Route: 040
     Dates: start: 20180713
  70. DOXORUBICIN HCL [Suspect]
     Active Substance: DOXORUBICIN HYDROCHLORIDE
     Dosage: 89 MG, UNK
     Route: 040
     Dates: start: 20180329
  71. METHYLPREDNISOLONE. [Suspect]
     Active Substance: METHYLPREDNISOLONE
     Indication: DIFFUSE LARGE B-CELL LYMPHOMA
     Dosage: 125 MG, UNK
     Route: 040
     Dates: start: 20180601
  72. VINCRISTINE SULFATE. [Suspect]
     Active Substance: VINCRISTINE SULFATE
     Dosage: 2 MG, UNK
     Route: 040
     Dates: start: 20180419
  73. VINCRISTINE SULFATE. [Suspect]
     Active Substance: VINCRISTINE SULFATE
     Dosage: 2 MG, UNK
     Route: 040
     Dates: start: 20180601
  74. TRUXIMA [Suspect]
     Active Substance: RITUXIMAB-ABBS
     Dosage: 665 MG, UNK (665 MG + IEV)
     Route: 042
     Dates: start: 20180925
  75. TRUXIMA [Suspect]
     Active Substance: RITUXIMAB-ABBS
     Dosage: 667.5 MG, UNK (667.5 MG (AS MAINTENANCE))
     Route: 042
     Dates: start: 20180803
  76. TRUXIMA [Suspect]
     Active Substance: RITUXIMAB-ABBS
     Dosage: 667.5 MG, UNK (667.5 MG + CHOP)
     Route: 042
     Dates: start: 20180328
  77. ONDANSETRON [Suspect]
     Active Substance: ONDANSETRON
     Dosage: 8 MG, UNK (8 MG, INFUSION)
     Dates: start: 20180713
  78. ONDANSETRON [Suspect]
     Active Substance: ONDANSETRON
     Dosage: 8 MG, WITH IEV THERAPY
     Dates: start: 20181026
  79. CYCLOPHOSPHAMIDE. [Suspect]
     Active Substance: CYCLOPHOSPHAMIDE
     Dosage: 1.33 MG, UNK (1.335 MG, INFUSION)
     Dates: start: 20180713
  80. CYCLOPHOSPHAMIDE. [Suspect]
     Active Substance: CYCLOPHOSPHAMIDE
     Dosage: 1.33 MG, UNK (1.335 MG, INFUSION)
     Dates: start: 20180419
  81. IFOSFAMIDE. [Suspect]
     Active Substance: IFOSFAMIDE
     Dosage: 4.4 MG, UNK (4.400 MG, INFUSION)
     Dates: start: 20181024
  82. IFOSFAMIDE. [Suspect]
     Active Substance: IFOSFAMIDE
     Dosage: 4.4 MG, UNK (4.400 MG, INFUSION)
     Dates: start: 20180926
  83. SODIUM CHLORIDE. [Concomitant]
     Active Substance: SODIUM CHLORIDE
     Dosage: INFUSION
     Dates: start: 20180928
  84. MESNA. [Concomitant]
     Active Substance: MESNA
     Dosage: 4.45 MG, UNK (4.450 MG, INFUSION)
     Dates: start: 20180926
  85. DESAMETASONE [Concomitant]
     Active Substance: DEXAMETHASONE
     Dosage: 14.24 MG, INFUSION
     Dates: start: 20180926
  86. DESAMETASONE [Concomitant]
     Active Substance: DEXAMETHASONE
     Dosage: 14.24 MG, INFUSION
     Dates: start: 20181026
  87. DESAMETASONE [Concomitant]
     Active Substance: DEXAMETHASONE
     Dosage: 14.24 MG, INFUSION
     Dates: start: 20180927
  88. POTASSIUM CHLORIDE. [Concomitant]
     Active Substance: POTASSIUM CHLORIDE
     Dosage: 40 MEQ, INFUSION
     Dates: start: 20180927
  89. POTASSIUM CHLORIDE. [Concomitant]
     Active Substance: POTASSIUM CHLORIDE
     Dosage: 40 MEQ, INFUSION
     Dates: start: 20180926
  90. GLUCOSE [Concomitant]
     Active Substance: DEXTROSE
     Dosage: 500 ML, INFUSION
     Dates: start: 20181026
  91. GLUCOSE [Concomitant]
     Active Substance: DEXTROSE
     Dosage: 500 ML, INFUSION
     Dates: start: 20180928
  92. EPIRUBICIN HCL [Suspect]
     Active Substance: EPIRUBICIN HYDROCHLORIDE
     Indication: DIFFUSE LARGE B-CELL LYMPHOMA
     Dosage: 178 MG, UNK
     Route: 030
     Dates: start: 20181024
  93. VINCRISTINE SULFATE. [Suspect]
     Active Substance: VINCRISTINE SULFATE
     Indication: DIFFUSE LARGE B-CELL LYMPHOMA
     Dosage: 2 MG, UNK
     Route: 040
     Dates: start: 20180512
  94. ONDANSETRON [Suspect]
     Active Substance: ONDANSETRON
     Indication: DIFFUSE LARGE B-CELL LYMPHOMA
     Dosage: 8 MG, UNK (8 MG, INFUSION)
     Dates: start: 20180601
  95. CYCLOPHOSPHAMIDE. [Suspect]
     Active Substance: CYCLOPHOSPHAMIDE
     Dosage: 1.33 MG, UNK (1.335 MG, INFUSION)
     Dates: start: 20180601
  96. IFOSFAMIDE. [Suspect]
     Active Substance: IFOSFAMIDE
     Dosage: 4.4 MG, UNK (4.400 MG, INFUSION)
     Dates: start: 20180927
  97. IFOSFAMIDE. [Suspect]
     Active Substance: IFOSFAMIDE
     Dosage: 4.4 MG, UNK (4.400 MG, INFUSION)
     Dates: start: 20181025
  98. SODIUM CHLORIDE. [Concomitant]
     Active Substance: SODIUM CHLORIDE
     Dosage: INFUSION
     Dates: start: 20180926
  99. SODIUM CHLORIDE. [Concomitant]
     Active Substance: SODIUM CHLORIDE
     Dosage: INFUSION
     Dates: start: 20181026
  100. MESNA. [Concomitant]
     Active Substance: MESNA
     Dosage: 4.45 MG, UNK (4.450 MG, INFUSION)
     Dates: start: 20181025
  101. DESAMETASONE [Concomitant]
     Active Substance: DEXAMETHASONE
     Dosage: 14.24 MG, INFUSION
     Dates: start: 20181025
  102. RINGER^S SOLUTION [CALCIUM CHLORIDE;POTASSIUM CHLORIDE;SODIUM CHLORIDE [Concomitant]
     Dosage: INFUSION
     Dates: start: 20180928

REACTIONS (3)
  - Asthenia [Recovered/Resolved]
  - Neutropenia [Recovered/Resolved]
  - Nausea [Recovered/Resolved]

NARRATIVE: CASE EVENT DATE: 20180622
